FAERS Safety Report 7464384-2 (Version None)
Quarter: 2011Q1

REPORT INFORMATION
  Report Type: 
  Country: None (occurrence: None)
  Receive Date: 20110302
  Receipt Date: 20100915
  Transmission Date: 20110831
  Serious: Yes (Other)
  Sender: FDA-Public Use
  Company Number: 163-21880-10091763

PATIENT
  Age: 84 Year
  Sex: Female

DRUGS (2)
  1. REVLIMID [Suspect]
     Indication: MULTIPLE MYELOMA
     Dosage: 5-10MG, DAILY, PO; 5 MG, DAILY FOR 21 DAYS ON THEN 7 DAYS OFF, PO
     Route: 048
     Dates: start: 20100801
  2. REVLIMID [Suspect]
     Indication: MULTIPLE MYELOMA
     Dosage: 5-10MG, DAILY, PO; 5 MG, DAILY FOR 21 DAYS ON THEN 7 DAYS OFF, PO
     Route: 048
     Dates: start: 20080701

REACTIONS (3)
  - NASAL CONGESTION [None]
  - ANAEMIA [None]
  - COUGH [None]
